FAERS Safety Report 5472981-9 (Version None)
Quarter: 2007Q4

REPORT INFORMATION
  Report Type: 
  Country: None (occurrence: None)
  Receive Date: 20071001
  Receipt Date: 20070117
  Transmission Date: 20080405
  Serious: No
  Sender: FDA-Public Use
  Company Number: US-ASTRAZENECA-2007UW00969

PATIENT
  Age: 65 Year
  Sex: Female
  Weight: 59.4 kg

DRUGS (4)
  1. ARIMIDEX [Suspect]
     Indication: BREAST CANCER
     Route: 048
     Dates: start: 20061001
  2. PRAVASTATIN [Concomitant]
  3. SULAR [Concomitant]
  4. NAPROXEN [Concomitant]

REACTIONS (4)
  - ARTHRALGIA [None]
  - HAIR GROWTH ABNORMAL [None]
  - HOT FLUSH [None]
  - WEIGHT INCREASED [None]
